FAERS Safety Report 14296710 (Version 1)
Quarter: 2017Q4

REPORT INFORMATION
  Report Type: Spontaneous
  Country: US (occurrence: US)
  Receive Date: 20171218
  Receipt Date: 20171218
  Transmission Date: 20180321
  Serious: Yes (Other)
  Sender: FDA-Public Use
  Company Number: US-PFIZER INC-2017535080

PATIENT
  Age: 85 Year
  Sex: Female
  Weight: 73.94 kg

DRUGS (4)
  1. LYRICA [Suspect]
     Active Substance: PREGABALIN
     Indication: PAIN IN EXTREMITY
  2. LYRICA [Suspect]
     Active Substance: PREGABALIN
     Indication: NEUROPATHY PERIPHERAL
  3. LYRICA [Suspect]
     Active Substance: PREGABALIN
     Indication: BALANCE DISORDER
     Dosage: 75MG, 2 TABLETS IN THE AM AND 1 IN THE PM
     Dates: start: 201711
  4. LYRICA [Suspect]
     Active Substance: PREGABALIN
     Indication: DIABETIC NEUROPATHY
     Dosage: 75MG, 1 IN THE AM, AND 1 AT BEDTIME

REACTIONS (5)
  - Fall [Unknown]
  - Drug ineffective [Unknown]
  - Abnormal behaviour [Not Recovered/Not Resolved]
  - Aggression [Not Recovered/Not Resolved]
  - Ankle fracture [Unknown]

NARRATIVE: CASE EVENT DATE: 201705
